FAERS Safety Report 8283995-8 (Version None)
Quarter: 2012Q2

REPORT INFORMATION
  Report Type: 
  Country: None (occurrence: None)
  Receive Date: 20120413
  Receipt Date: 20110404
  Transmission Date: 20120825
  Serious: No
  Sender: FDA-Public Use
  Company Number: US-ASTRAZENECA-2011SE18896

PATIENT
  Sex: Female

DRUGS (2)
  1. NEXIUM [Suspect]
     Indication: GASTROOESOPHAGEAL REFLUX DISEASE
     Dosage: ONCE A DAY OR EVERY OTHER DAY
     Route: 048
  2. NEXIUM [Suspect]
     Indication: IRRITABLE BOWEL SYNDROME
     Dosage: ONCE A DAY OR EVERY OTHER DAY
     Route: 048

REACTIONS (5)
  - DRUG DOSE OMISSION [None]
  - GASTRIC DISORDER [None]
  - DYSPEPSIA [None]
  - OFF LABEL USE [None]
  - INAPPROPRIATE SCHEDULE OF DRUG ADMINISTRATION [None]
